FAERS Safety Report 4653107-8 (Version None)
Quarter: 2005Q2

REPORT INFORMATION
  Report Type: 
  Country: None (occurrence: None)
  Receive Date: 20050503
  Receipt Date: 20050427
  Transmission Date: 20051028
  Serious: Yes (Hospitalization, Other)
  Sender: FDA-Public Use
  Company Number: 10951

PATIENT
  Age: 72 Year
  Sex: Male
  Weight: 92 kg

DRUGS (3)
  1. CYTARABINE [Suspect]
     Indication: ACUTE MYELOID LEUKAEMIA
     Dosage: 100 MG/M2 OTH IV
     Route: 042
     Dates: start: 20050401
  2. DAUNORUBICIN [Suspect]
     Indication: ACUTE MYELOID LEUKAEMIA
     Dosage: 45 MG/M2 OTH IV
     Route: 042
     Dates: start: 20050401
  3. MDR-INTRAVENOUS FORMULATION [Suspect]
     Indication: ACUTE MYELOID LEUKAEMIA
     Dosage: 550 MG OTH IV
     Route: 042
     Dates: start: 20050401

REACTIONS (8)
  - CELLULITIS [None]
  - COORDINATION ABNORMAL [None]
  - DEEP VEIN THROMBOSIS [None]
  - FALL [None]
  - GAIT DISTURBANCE [None]
  - HEAD INJURY [None]
  - PLATELET COUNT DECREASED [None]
  - TREMOR [None]
